FAERS Safety Report 7930797-5 (Version None)
Quarter: 2011Q4

REPORT INFORMATION
  Report Type: 
  Country: None (occurrence: None)
  Receive Date: 20111121
  Receipt Date: 20111114
  Transmission Date: 20120403
  Serious: Yes (Other)
  Sender: FDA-Public Use
  Company Number: GB-GLAXOSMITHKLINE-B0761098A

PATIENT
  Age: 36 Year
  Sex: Male

DRUGS (2)
  1. ALCOHOL [Suspect]
     Dates: start: 20020203
  2. BUPROPION HCL [Suspect]
     Indication: SMOKING CESSATION THERAPY
     Dosage: 150MG PER DAY
     Route: 048
     Dates: start: 20090406

REACTIONS (5)
  - CONFUSIONAL STATE [None]
  - INSOMNIA [None]
  - DRUG INTERACTION [None]
  - HEADACHE [None]
  - AGGRESSION [None]
